FAERS Safety Report 5722243-7 (Version None)
Quarter: 2008Q2

REPORT INFORMATION
  Report Type: 
  Country: None (occurrence: None)
  Receive Date: 20080424
  Receipt Date: 20080410
  Transmission Date: 20081010
  Serious: Yes (Other)
  Sender: FDA-Public Use
  Company Number: VNL_01042_2008

PATIENT
  Sex: Female

DRUGS (1)
  1. APO-GO (APO-GO AMPOULES 10 MG/ML SOLUTION FOR INJECTION - APOMORPHINE [Suspect]
     Indication: PARKINSON'S DISEASE
     Dosage: (4 MG PER HOUR FOR UNKNOWN FOR 24 HOURS PER DAY SUBCUTANEOUS), (DF FOR 7 YEARS SUBCUTANEOUS)
     Route: 058
     Dates: start: 20060101, end: 20060101

REACTIONS (2)
  - INFUSION SITE INFECTION [None]
  - INFUSION SITE NECROSIS [None]
